FAERS Safety Report 23368079 (Version 1)
Quarter: 2024Q1

REPORT INFORMATION
  Report Type: Spontaneous
  Country: CN (occurrence: CN)
  Receive Date: 20240105
  Receipt Date: 20240105
  Transmission Date: 20240410
  Serious: Yes (Other)
  Sender: FDA-Public Use
  Company Number: None

PATIENT
  Age: 14 Year
  Sex: Male
  Weight: 44 kg

DRUGS (5)
  1. OLANZAPINE [Suspect]
     Active Substance: OLANZAPINE
     Indication: Psychotic symptom
     Dosage: 15 MG/DAY
     Route: 048
     Dates: start: 20231212, end: 20231219
  2. OLANZAPINE [Suspect]
     Active Substance: OLANZAPINE
     Dosage: 10MG,BID
     Route: 048
     Dates: start: 20231219, end: 20231229
  3. RISPERIDONE [Suspect]
     Active Substance: RISPERIDONE
     Indication: Psychotic symptom
     Dosage: 3 ML TWICE DAILY
     Route: 048
     Dates: start: 20231205, end: 20231215
  4. RISPERIDONE [Suspect]
     Active Substance: RISPERIDONE
     Dosage: 2 ML TWICE DAILY
     Route: 048
     Dates: start: 20231215, end: 20231217
  5. RISPERIDONE [Suspect]
     Active Substance: RISPERIDONE
     Dosage: 1 ML TWICE DAILY
     Route: 048
     Dates: start: 20231217, end: 20231219

REACTIONS (1)
  - Akathisia [Recovering/Resolving]

NARRATIVE: CASE EVENT DATE: 20231220
